FAERS Safety Report 17970494 (Version 5)
Quarter: 2020Q3

REPORT INFORMATION
  Report Type: Other
  Country: FR (occurrence: FR)
  Receive Date: 20200702
  Receipt Date: 20200810
  Transmission Date: 20201103
  Serious: Yes (Other)
  Sender: FDA-Public Use
  Company Number: FR-CELLTRION INC.-2020FR023729

PATIENT

DRUGS (17)
  1. CELLCEPT [Suspect]
     Active Substance: MYCOPHENOLATE MOFETIL\MYCOPHENOLATE MOFETIL HYDROCHLORIDE
     Indication: NEUROMYELITIS OPTICA SPECTRUM DISORDER
     Dosage: 0.25/DAY
     Route: 048
  2. RITUXIMAB (UNKNOWN) [Suspect]
     Active Substance: RITUXIMAB
     Dosage: UNK
     Route: 041
     Dates: start: 201911
  3. CELLCEPT [Suspect]
     Active Substance: MYCOPHENOLATE MOFETIL\MYCOPHENOLATE MOFETIL HYDROCHLORIDE
     Dosage: 0.25/DAY
     Route: 048
     Dates: start: 201502
  4. CELLCEPT [Suspect]
     Active Substance: MYCOPHENOLATE MOFETIL\MYCOPHENOLATE MOFETIL HYDROCHLORIDE
     Dosage: UNK, DAILY
     Route: 048
     Dates: start: 20200601
  5. IMUREL [AZATHIOPRINE] [Concomitant]
     Active Substance: AZATHIOPRINE
  6. RITUXIMAB (UNKNOWN) [Suspect]
     Active Substance: RITUXIMAB
     Indication: NEUROMYELITIS OPTICA SPECTRUM DISORDER
     Dosage: UNK
     Route: 041
  7. RITUXIMAB (UNKNOWN) [Suspect]
     Active Substance: RITUXIMAB
     Dosage: UNK
     Route: 065
  8. SOLUPRED [PREDNISOLONE METASULFOBENZOATE SODIUM] [Concomitant]
     Active Substance: PREDNISOLONE SODIUM METAZOATE
     Dosage: ONCE A DAY FOR 3 DAYS
  9. CORTISONE [Concomitant]
     Active Substance: CORTISONE
     Dosage: UNK
  10. DESLORATADINE. [Concomitant]
     Active Substance: DESLORATADINE
     Indication: PREMEDICATION
     Dosage: UNK
  11. MONTELUKAST [Concomitant]
     Active Substance: MONTELUKAST SODIUM
     Dosage: UNK
  12. PARACETAMOL [Concomitant]
     Active Substance: ACETAMINOPHEN
     Dosage: UNK
  13. CELLCEPT [Suspect]
     Active Substance: MYCOPHENOLATE MOFETIL\MYCOPHENOLATE MOFETIL HYDROCHLORIDE
     Dosage: 0.25/DAY
     Route: 048
     Dates: start: 20200622
  14. POLARAMINE [Concomitant]
     Active Substance: DEXCHLORPHENIRAMINE MALEATE
     Indication: PREMEDICATION
     Dosage: 5 MG
     Route: 042
  15. PANTOPRAZOLE [Concomitant]
     Active Substance: PANTOPRAZOLE
     Dosage: 20 MG, ONCE A DAY
  16. DOLIPRANE [Concomitant]
     Active Substance: ACETAMINOPHEN
     Indication: PREMEDICATION
     Dosage: 1 G
     Route: 042
  17. SOLUPRED [PREDNISOLONE METASULFOBENZOATE SODIUM] [Concomitant]
     Active Substance: PREDNISOLONE SODIUM METAZOATE
     Dosage: EVERY 0.5 DAY FOR 2 DAYS

REACTIONS (12)
  - Infusion related reaction [Unknown]
  - Off label use [Unknown]
  - Dyspepsia [Unknown]
  - Overdose [Unknown]
  - Product preparation issue [Unknown]
  - Lung disorder [Unknown]
  - Nausea [Recovered/Resolved]
  - Interstitial lung disease [Recovered/Resolved]
  - Hypersensitivity [Recovered/Resolved]
  - Hypersensitivity [Unknown]
  - Intentional product use issue [Unknown]
  - Product preparation error [Unknown]

NARRATIVE: CASE EVENT DATE: 201911
